FAERS Safety Report 14244503 (Version 2)
Quarter: 2017Q4

REPORT INFORMATION
  Report Type: Spontaneous
  Country: JP (occurrence: JP)
  Receive Date: 20171201
  Receipt Date: 20171211
  Transmission Date: 20180321
  Serious: Yes (Hospitalization)
  Sender: FDA-Public Use
  Company Number: JP-009507513-1711JPN008211

PATIENT
  Age: 90 Year
  Sex: Male

DRUGS (5)
  1. TAPROS (TAFLUPROST) [Suspect]
     Active Substance: TAFLUPROST
     Indication: GLAUCOMA
     Dosage: 1 GTT, QD, OU
     Route: 047
     Dates: start: 20170331
  2. FLUMETHOLON [Suspect]
     Active Substance: FLUOROMETHOLONE
     Indication: POST PROCEDURAL INFLAMMATION
     Dosage: 1 GTT, BID, OU
     Route: 047
     Dates: start: 20170707
  3. CRAVIT [Suspect]
     Active Substance: LEVOFLOXACIN
     Indication: POST PROCEDURAL INFLAMMATION
     Dosage: 1 GTT, TID, OU
     Route: 047
     Dates: start: 20170707
  4. DORZOLAMIDE HYDROCHLORIDE. [Suspect]
     Active Substance: DORZOLAMIDE HYDROCHLORIDE
     Indication: GLAUCOMA
     Dosage: 1 GTT, TID, OU
     Route: 047
     Dates: start: 20170407
  5. FEXOFENADINE HYDROCHLORIDE. [Concomitant]
     Active Substance: FEXOFENADINE HYDROCHLORIDE
     Dosage: UNK

REACTIONS (2)
  - Cataract operation [Unknown]
  - Nasal congestion [Recovered/Resolved]

NARRATIVE: CASE EVENT DATE: 20170605
